FAERS Safety Report 14606614 (Version 1)
Quarter: 2018Q1

REPORT INFORMATION
  Report Type: Spontaneous
  Country: US (occurrence: US)
  Receive Date: 20180307
  Receipt Date: 20180307
  Transmission Date: 20180509
  Serious: No
  Sender: FDA-Public Use
  Company Number: US-TEVA-771888ACC

PATIENT
  Sex: Female
  Weight: 54.43 kg

DRUGS (1)
  1. GABAPENTIN. [Suspect]
     Active Substance: GABAPENTIN
     Indication: NEUROPATHY PERIPHERAL
     Dosage: 400 MILLIGRAM DAILY;
     Route: 048
     Dates: start: 2007

REACTIONS (2)
  - Intentional product misuse [Unknown]
  - Somnolence [Unknown]
